FAERS Safety Report 6347504-2 (Version None)
Quarter: 2009Q3

REPORT INFORMATION
  Report Type: 
  Country: None (occurrence: None)
  Receive Date: 20090908
  Receipt Date: 20090908
  Transmission Date: 20100115
  Serious: No
  Sender: FDA-Public Use
  Company Number: None

PATIENT
  Sex: Female
  Weight: 65.7716 kg

DRUGS (7)
  1. TOPAMAX [Suspect]
     Indication: HEADACHE
     Dosage: 200MG BID
     Dates: start: 20090401
  2. TOPAMAX [Suspect]
     Indication: MIGRAINE WITHOUT AURA
     Dosage: 200MG BID
     Dates: start: 20090401
  3. IMMITREX [Concomitant]
  4. STADOL [Concomitant]
  5. ZOMIG [Concomitant]
  6. ANAPROX DS [Concomitant]
  7. FIORINAL W/CODEINE [Concomitant]

REACTIONS (3)
  - CONDITION AGGRAVATED [None]
  - DRUG INEFFECTIVE [None]
  - MIGRAINE [None]
